FAERS Safety Report 24407814 (Version 1)
Quarter: 2024Q4

REPORT INFORMATION
  Report Type: Spontaneous
  Country: US (occurrence: US)
  Receive Date: 20241007
  Receipt Date: 20241007
  Transmission Date: 20250114
  Serious: No
  Sender: BAYER
  Company Number: US-BAYER-2024A140577

PATIENT
  Age: 41 Year
  Sex: Female

DRUGS (2)
  1. MIRENA [Suspect]
     Active Substance: LEVONORGESTREL
     Indication: Intrauterine contraception
     Dosage: 20?G/DAY
     Route: 015
     Dates: start: 202406
  2. SKYRIZI [Concomitant]
     Active Substance: RISANKIZUMAB-RZAA

REACTIONS (1)
  - Pruritus [None]
